FAERS Safety Report 6573828-X (Version None)
Quarter: 2010Q1

REPORT INFORMATION
  Report Type: 
  Country: None (occurrence: None)
  Receive Date: 20100208
  Receipt Date: 20100203
  Transmission Date: 20100710
  Serious: Yes (Hospitalization)
  Sender: FDA-Public Use
  Company Number: GR-BRISTOL-MYERS SQUIBB COMPANY-14961031

PATIENT
  Age: 78 Year
  Sex: Female

DRUGS (4)
  1. ORENCIA [Suspect]
     Indication: RHEUMATOID ARTHRITIS
     Dosage: LAST DOSE ON 12JAN2010.
     Route: 042
  2. DILTIAZEM HCL [Concomitant]
     Indication: HYPERTENSION
  3. IDEOS [Concomitant]
  4. LIPITOR [Concomitant]
     Indication: HYPERCHOLESTEROLAEMIA

REACTIONS (2)
  - HYPERTENSION [None]
  - SENSORY LOSS [None]
